FAERS Safety Report 11873060 (Version 1)
Quarter: 2015Q4

REPORT INFORMATION
  Report Type: Spontaneous
  Country: RU (occurrence: RU)
  Receive Date: 20151228
  Receipt Date: 20151228
  Transmission Date: 20160305
  Serious: Yes (Other)
  Sender: FDA-Public Use
  Company Number: RU-BAYER-2015-494629

PATIENT
  Age: 65 Year
  Sex: Female

DRUGS (1)
  1. ASPIRIN CARDIO [Suspect]
     Active Substance: ASPIRIN

REACTIONS (4)
  - Aspirin-exacerbated respiratory disease [Not Recovered/Not Resolved]
  - Sinus polyp [Not Recovered/Not Resolved]
  - Asthma [Not Recovered/Not Resolved]
  - Nasal polyps [Not Recovered/Not Resolved]
